FAERS Safety Report 6546419-4 (Version None)
Quarter: 2010Q1

REPORT INFORMATION
  Report Type: 
  Country: None (occurrence: None)
  Receive Date: 20100122
  Receipt Date: 20100113
  Transmission Date: 20100710
  Serious: Yes (Hospitalization)
  Sender: FDA-Public Use
  Company Number: PL-NOVOPROD-302296

PATIENT
  Age: 57 Year
  Sex: Female
  Weight: 67 kg

DRUGS (7)
  1. INSULIN DETEMIR 2.4 MOL/L [Suspect]
     Indication: TYPE 2 DIABETES MELLITUS
     Dosage: 7 U, QD
     Route: 058
     Dates: start: 20090910
  2. BIOSOTAL [Concomitant]
     Dosage: 120 MG, UNK
     Route: 048
     Dates: start: 20091006
  3. SINTROM [Concomitant]
     Dosage: ACCORDING TO INR
     Route: 048
     Dates: start: 20091006
  4. LOSARTAN POTASSIUM [Concomitant]
     Dosage: 50 MG, UNK
     Route: 048
     Dates: start: 20061016
  5. ELTROXIN [Concomitant]
     Dosage: 25 UG, UNK
     Route: 048
     Dates: start: 20090616
  6. AMARYL [Concomitant]
     Dosage: 6 MG, UNK
  7. GLUCOPHAGE [Concomitant]
     Dosage: 1000 MG, TID

REACTIONS (1)
  - ATRIAL FIBRILLATION [None]
